FAERS Safety Report 9288348 (Version 1)
Quarter: 2013Q2

REPORT INFORMATION
  Report Type: Spontaneous
  Country: US (occurrence: US)
  Receive Date: 20130514
  Receipt Date: 20130514
  Transmission Date: 20140414
  Serious: Yes (Other)
  Sender: FDA-Public Use
  Company Number: US-PFIZER INC-2013142910

PATIENT
  Sex: Female

DRUGS (6)
  1. CYTOMEL [Suspect]
     Dosage: UNK
  2. LEVOTHYROXINE SODIUM [Suspect]
     Dosage: UNK
  3. SYNTHROID [Suspect]
     Dosage: UNK
  4. UNSPECIFIED INGREDIENT [Suspect]
     Dosage: UNK
  5. NATURE-THROID [Suspect]
     Dosage: UNK
  6. LEVOXYL [Concomitant]
     Dosage: UNK

REACTIONS (6)
  - Hypertension [Unknown]
  - Heart rate increased [Unknown]
  - Depression [Unknown]
  - Crying [Unknown]
  - Product quality issue [None]
  - Exposure during pregnancy [None]
